FAERS Safety Report 10454634 (Version 3)
Quarter: 2014Q4

REPORT INFORMATION
  Report Type: Report from Study
  Country: IT (occurrence: CA)
  Receive Date: 20140915
  Receipt Date: 20141014
  Transmission Date: 20150528
  Serious: Yes (Other)
  Sender: FDA-Public Use
  Company Number: PHHY2014CA011305

PATIENT
  Age: 68 Year
  Sex: Female

DRUGS (4)
  1. AFINITOR [Suspect]
     Active Substance: EVEROLIMUS
     Indication: OFF LABEL USE
     Dosage: UNK
     Dates: start: 20140513
  2. SANDOSTATIN [Suspect]
     Active Substance: OCTREOTIDE ACETATE
     Indication: METASTATIC BRONCHIAL CARCINOMA
     Dosage: 30 MG, QMO
     Route: 030
     Dates: start: 20120507, end: 20130103
  3. SANDOSTATIN [Suspect]
     Active Substance: OCTREOTIDE ACETATE
     Indication: OFF LABEL USE
  4. AFINITOR [Suspect]
     Active Substance: EVEROLIMUS
     Indication: METASTATIC BRONCHIAL CARCINOMA
     Dosage: 10 MG, QD
     Route: 048
     Dates: start: 20130204

REACTIONS (13)
  - Stress [Unknown]
  - Bone neoplasm [Unknown]
  - Fear [Unknown]
  - Myalgia [Unknown]
  - Mood altered [Unknown]
  - Brain neoplasm [Unknown]
  - Fall [Unknown]
  - Hepatic neoplasm [Unknown]
  - Crying [Unknown]
  - Emotional disorder [Unknown]
  - Dyspnoea [Unknown]
  - Lung neoplasm [Unknown]
  - Neoplasm [Unknown]

NARRATIVE: CASE EVENT DATE: 201408
